FAERS Safety Report 9527800 (Version 2)
Quarter: 2013Q2

REPORT INFORMATION
  Report Type: Spontaneous
  Country: US (occurrence: None)
  Receive Date: 20130314
  Receipt Date: 20130606
  Transmission Date: 20140414
  Serious: Yes (Hospitalization, Other)
  Sender: FDA-Public Use
  Company Number: 2012PROUSA02442

PATIENT
  Age: 70 Year
  Sex: Male
  Weight: 73.2 kg

DRUGS (11)
  1. PROVENGE [Suspect]
     Indication: PROSTATE CANCER METASTATIC
     Dosage: 250 ML, SINGLE, INTRAVENOUS
     Route: 042
     Dates: start: 20120426, end: 20120426
  2. ABIRATERONE ACETATE W/PREDNISOLONE (ABIRATERONE ACETATE W/PREDISOLONE) [Concomitant]
  3. LEUPROLIDE (LEUPROLIDE) [Concomitant]
  4. CRESTOR(ROSUVASTATIN CALCIUM) [Concomitant]
  5. DETROL(TOLTERODINE I-TARTRATE) [Concomitant]
  6. LORAZEPAM(LORAZEPAM) [Concomitant]
  7. PAROXETINE(PAROXETINE HYDROCHLORIDE) [Concomitant]
  8. PREDNISONE(PREDNISONE) [Concomitant]
  9. VITAMIN D3(COLECALCIFEROL) [Concomitant]
  10. VITAMIN B12 (CYANOCOBALAMIN) [Concomitant]
  11. OXYCODONE(OXYCODONE) [Suspect]
     Dosage: 5 MG PRN

REACTIONS (12)
  - Asthenia [None]
  - Vomiting [None]
  - Pyrexia [None]
  - Arthralgia [None]
  - Anaemia [None]
  - Disease progression [None]
  - Sedation [None]
  - Depression [None]
  - Pollakiuria [None]
  - Poor venous access [None]
  - Micturition urgency [None]
  - Pain in extremity [None]
